FAERS Safety Report 8604357-7 (Version None)
Quarter: 2012Q3

REPORT INFORMATION
  Report Type: 
  Country: None (occurrence: None)
  Receive Date: 20120820
  Receipt Date: 20120809
  Transmission Date: 20120928
  Serious: Yes (Hospitalization)
  Sender: FDA-Public Use
  Company Number: US-JNJFOC-20120407908

PATIENT
  Sex: Female
  Weight: 91.17 kg

DRUGS (7)
  1. TRAMADOL HCL [Concomitant]
     Route: 065
  2. METHOTREXATE [Concomitant]
     Route: 048
     Dates: start: 20120611
  3. REMICADE [Suspect]
     Indication: RHEUMATOID ARTHRITIS
     Route: 042
     Dates: start: 20111017
  4. PREDNISONE TAB [Concomitant]
     Route: 065
  5. REMICADE [Suspect]
     Route: 042
     Dates: start: 20110901, end: 20111201
  6. LISINOPRIL [Concomitant]
     Route: 065
  7. FOLIC ACID [Concomitant]
     Route: 048
     Dates: start: 20120611

REACTIONS (2)
  - ARTHROPATHY [None]
  - OSTEOARTHRITIS [None]
